FAERS Safety Report 5198769-4 (Version None)
Quarter: 2007Q1

REPORT INFORMATION
  Report Type: 
  Country: None (occurrence: None)
  Receive Date: 20070104
  Receipt Date: 20070102
  Transmission Date: 20070707
  Serious: Yes (Hospitalization)
  Sender: FDA-Public Use
  Company Number: FR-GLAXOSMITHKLINE-B0452107A

PATIENT
  Age: 47 Year
  Sex: Male

DRUGS (2)
  1. CLAMOXYL [Suspect]
     Indication: DENTAL DISORDER PROPHYLAXIS
     Route: 065
  2. FLAGYL [Suspect]
     Indication: DENTAL DISORDER PROPHYLAXIS
     Route: 048

REACTIONS (4)
  - DERMATITIS EXFOLIATIVE [None]
  - HEADACHE [None]
  - HYPERSENSITIVITY [None]
  - PYREXIA [None]
